FAERS Safety Report 9027377 (Version 2)
Quarter: 2013Q1

REPORT INFORMATION
  Report Type: Spontaneous
  Country: US (occurrence: US)
  Receive Date: 20130124
  Receipt Date: 20130208
  Transmission Date: 20140127
  Serious: Yes (Other)
  Sender: FDA-Public Use
  Company Number: US-AMGEN-USASP2013003447

PATIENT
  Age: 65 Year
  Sex: Female

DRUGS (2)
  1. ENBREL [Suspect]
     Indication: RHEUMATOID ARTHRITIS
     Dosage: 50 MG, QWK
     Dates: start: 19990701
  2. METHOTREXATE [Concomitant]
     Dosage: 8- 2.5 MG TABS WEEKLY

REACTIONS (7)
  - Uterine polyp [Recovered/Resolved]
  - Rotator cuff syndrome [Not Recovered/Not Resolved]
  - Local swelling [Not Recovered/Not Resolved]
  - Joint swelling [Recovered/Resolved]
  - Musculoskeletal pain [Recovered/Resolved]
  - Laryngitis [Not Recovered/Not Resolved]
  - Influenza [Not Recovered/Not Resolved]
